FAERS Safety Report 7434398-7 (Version None)
Quarter: 2011Q2

REPORT INFORMATION
  Report Type: 
  Country: None (occurrence: None)
  Receive Date: 20110425
  Receipt Date: 20110413
  Transmission Date: 20111010
  Serious: Yes (Other)
  Sender: FDA-Public Use
  Company Number: PHEH2010US03485

PATIENT
  Sex: Female

DRUGS (7)
  1. FLEXERIL [Concomitant]
  2. DARVOCET-N 50 [Concomitant]
  3. PREVACID [Concomitant]
  4. ZELNORM [Suspect]
     Dosage: UNK
     Dates: start: 20040101
  5. AUGMENTIN '125' [Concomitant]
  6. ROBITUSSIN ^ROBINS^ [Concomitant]
  7. ZYRTEC [Concomitant]

REACTIONS (13)
  - MUSCULOSKELETAL PAIN [None]
  - DYSPNOEA [None]
  - CHEST PAIN [None]
  - GASTROOESOPHAGEAL REFLUX DISEASE [None]
  - DYSPEPSIA [None]
  - DIVERTICULUM OESOPHAGEAL [None]
  - MUSCLE STRAIN [None]
  - COUGH [None]
  - GASTRITIS [None]
  - INJURY [None]
  - MIGRAINE [None]
  - HELICOBACTER GASTRITIS [None]
  - INFLUENZA LIKE ILLNESS [None]
